FAERS Safety Report 5776895-6 (Version None)
Quarter: 2008Q2

REPORT INFORMATION
  Report Type: 
  Country: None (occurrence: None)
  Receive Date: 20080618
  Receipt Date: 20080612
  Transmission Date: 20081010
  Serious: Yes (Hospitalization)
  Sender: FDA-Public Use
  Company Number: A0733501A

PATIENT
  Age: 45 Year
  Sex: Male

DRUGS (14)
  1. AVANDIA [Suspect]
     Indication: DIABETES MELLITUS
     Dosage: 4MG TWICE PER DAY
     Route: 048
     Dates: end: 20070501
  2. AVANDAMET [Suspect]
     Indication: DIABETES MELLITUS
     Dosage: 1TAB TWICE PER DAY
     Route: 048
  3. BUSPIRONE HCL [Concomitant]
  4. CARDIZEM [Concomitant]
  5. FUROSEMIDE [Concomitant]
  6. LEVOTHYROXINE SODIUM [Concomitant]
  7. METFORMIN [Concomitant]
  8. LIPITOR [Concomitant]
  9. ALTACE [Concomitant]
  10. AMITRIPTYLINE HCL [Concomitant]
  11. ASPIRIN [Concomitant]
  12. ATENOLOL [Concomitant]
  13. VYTORIN [Concomitant]
  14. HYZAAR [Concomitant]

REACTIONS (2)
  - ATRIAL FIBRILLATION [None]
  - CARDIAC FAILURE CONGESTIVE [None]
